FAERS Safety Report 24351444 (Version 1)
Quarter: 2024Q3

REPORT INFORMATION
  Report Type: Spontaneous
  Country: DE (occurrence: DE)
  Receive Date: 20240923
  Receipt Date: 20240923
  Transmission Date: 20241017
  Serious: No
  Sender: ROCHE
  Company Number: DE-002147023-NVSC2021DE218571

PATIENT
  Sex: Female

DRUGS (4)
  1. HERCEPTIN [Suspect]
     Active Substance: TRASTUZUMAB
     Indication: HER2 positive breast cancer
     Dosage: UNK (2 YEARS)
     Route: 065
  2. ZOMETA [Suspect]
     Active Substance: ZOLEDRONIC ACID
     Indication: HER2 positive breast cancer
     Dosage: FOR 10 YEARS
     Route: 065
     Dates: start: 2011
  3. LETROZOLE [Suspect]
     Active Substance: LETROZOLE
     Indication: Product used for unknown indication
     Dosage: UNK (ONE TABLET DAILY)
     Route: 065
  4. GOSERELIN ACETATE [Suspect]
     Active Substance: GOSERELIN ACETATE
     Indication: Product used for unknown indication
     Route: 065

REACTIONS (2)
  - Stress [Unknown]
  - Fear [Unknown]
